FAERS Safety Report 25065947 (Version 1)
Quarter: 2025Q1

REPORT INFORMATION
  Report Type: Spontaneous
  Country: CN (occurrence: CN)
  Receive Date: 20250312
  Receipt Date: 20250312
  Transmission Date: 20250408
  Serious: Yes (Disabling)
  Sender: NOVO NORDISK
  Company Number: CN-NOVOPROD-1382512

PATIENT
  Sex: Female

DRUGS (2)
  1. INSULIN ASPART [Suspect]
     Active Substance: INSULIN ASPART
     Indication: Product used for unknown indication
  2. RYZODEG 70/30 [Suspect]
     Active Substance: INSULIN ASPART\INSULIN DEGLUDEC
     Indication: Product used for unknown indication

REACTIONS (3)
  - Vision blurred [Unknown]
  - Visual impairment [Unknown]
  - Fatigue [Unknown]
